FAERS Safety Report 8329819-1 (Version None)
Quarter: 2012Q2

REPORT INFORMATION
  Report Type: 
  Country: None (occurrence: None)
  Receive Date: 20120502
  Receipt Date: 20120428
  Transmission Date: 20120825
  Serious: Yes (Other)
  Sender: FDA-Public Use
  Company Number: US-PFIZER INC-2012105434

PATIENT
  Sex: Male
  Weight: 66.7 kg

DRUGS (4)
  1. ZOLOFT [Concomitant]
     Indication: DIZZINESS
  2. ACETYLSALICYLIC ACID [Concomitant]
     Indication: ARTHRALGIA
     Dosage: 200 MG, DAILY
  3. ZOLOFT [Concomitant]
     Indication: STRESS
     Dosage: 100 MG, DAILY
     Dates: start: 20040101
  4. LYRICA [Suspect]
     Indication: FIBROMYALGIA
     Dosage: 100 MG, DAILY
     Route: 048
     Dates: start: 20120428

REACTIONS (6)
  - ACTIVITIES OF DAILY LIVING IMPAIRED [None]
  - SOMNOLENCE [None]
  - HEAD DISCOMFORT [None]
  - FEELING ABNORMAL [None]
  - GAIT DISTURBANCE [None]
  - SPEECH DISORDER [None]
